FAERS Safety Report 9586889 (Version 2)
Quarter: 2013Q4

REPORT INFORMATION
  Report Type: Report from Study
  Country: BR (occurrence: BR)
  Receive Date: 20131003
  Receipt Date: 20131003
  Transmission Date: 20140711
  Serious: Yes (Death)
  Sender: FDA-Public Use
  Company Number: BR-ABBVIE-13P-020-1141249-00

PATIENT
  Sex: Male

DRUGS (2)
  1. HUMIRA [Suspect]
     Indication: CROHN^S DISEASE
     Dosage: WEEK 0
     Route: 058
     Dates: start: 20120504, end: 201302
  2. HUMIRA [Suspect]
     Dosage: WEEK 1
     Route: 058

REACTIONS (2)
  - Intestinal perforation [Fatal]
  - Abdominal pain upper [Unknown]
